FAERS Safety Report 8599717-7 (Version None)
Quarter: 2012Q3

REPORT INFORMATION
  Report Type: 
  Country: None (occurrence: None)
  Receive Date: 20120802
  Receipt Date: 20120723
  Transmission Date: 20120928
  Serious: Yes (Other)
  Sender: FDA-Public Use
  Company Number: EU-2012-10212

PATIENT
  Age: 65 Year
  Sex: Male

DRUGS (5)
  1. VALPROIC ACID [Concomitant]
  2. VALDOXAN (AGOMELATIN) [Concomitant]
  3. LEVODOPA (LEVODOPA) [Concomitant]
  4. DOMPERIDONE (DOMPERIDONE) [Concomitant]
  5. SAMSCA [Suspect]
     Indication: INAPPROPRIATE ANTIDIURETIC HORMONE SECRETION
     Dosage: 15 MG MILLIGRAM(S), UNKNOWN, OTHER
     Dates: start: 20120516

REACTIONS (6)
  - SYNCOPE [None]
  - BLOOD PRESSURE DECREASED [None]
  - BLOOD SODIUM INCREASED [None]
  - RAPID CORRECTION OF HYPONATRAEMIA [None]
  - POLYURIA [None]
  - WRONG TECHNIQUE IN DRUG USAGE PROCESS [None]
